FAERS Safety Report 21976997 (Version 1)
Quarter: 2023Q1

REPORT INFORMATION
  Report Type: Spontaneous
  Country: US (occurrence: None)
  Receive Date: 20230210
  Receipt Date: 20230210
  Transmission Date: 20230417
  Serious: Yes (Death, Hospitalization)
  Sender: FDA-Public Use
  Company Number: None

PATIENT
  Age: 59 Year
  Sex: Male

DRUGS (2)
  1. PIPERACILLIN AND TAZOBACTAM [Suspect]
     Active Substance: PIPERACILLIN SODIUM\TAZOBACTAM SODIUM
     Indication: Infectious pleural effusion
     Dosage: DRUGS WITHDRAWN AND MAC, TREATMENT WITH CLARITHROMYCIN, RIFAMPICIN, AND ETHAMBUTOL WAS INITIATED.
  2. VANCOMYCIN [Suspect]
     Active Substance: VANCOMYCIN
     Indication: Infectious pleural effusion
     Dosage: DRUGS WITHDRAWN AND MAC, TREATMENT WITH CLARITHROMYCIN, RIFAMPICIN, AND ETHAMBUTOL WAS INITIATED.

REACTIONS (5)
  - Drug ineffective [Fatal]
  - Infectious pleural effusion [Fatal]
  - Staphylococcal infection [Fatal]
  - Enterococcal infection [Fatal]
  - Mycobacterium avium complex infection [Fatal]
